FAERS Safety Report 11583266 (Version 1)
Quarter: 2015Q4

REPORT INFORMATION
  Report Type: Spontaneous
  Country: DE (occurrence: DE)
  Receive Date: 20151001
  Receipt Date: 20151001
  Transmission Date: 20160304
  Serious: Yes (Death, Other)
  Sender: FDA-Public Use
  Company Number: DE-ELI_LILLY_AND_COMPANY-DE201509009221

PATIENT
  Age: 23 Year
  Sex: Female

DRUGS (17)
  1. ZYPREXA [Suspect]
     Active Substance: OLANZAPINE
     Indication: PRODUCT USED FOR UNKNOWN INDICATION
     Dosage: 2.5 MG, QD
     Route: 065
     Dates: start: 20130114, end: 20130128
  2. SAROTEN [Concomitant]
     Active Substance: AMITRIPTYLINE
     Indication: PRODUCT USED FOR UNKNOWN INDICATION
     Dosage: 100 MG, QD
     Route: 065
     Dates: start: 20130128, end: 20130211
  3. CITALOPRAM [Concomitant]
     Active Substance: CITALOPRAM HYDROBROMIDE
     Dosage: 10 MG, QD
     Route: 065
     Dates: start: 20130116
  4. ZYPREXA [Suspect]
     Active Substance: OLANZAPINE
     Dosage: 5 MG, UNKNOWN
     Route: 065
  5. TAVOR [Suspect]
     Active Substance: LORAZEPAM
     Dosage: 3 MG, QD
     Route: 065
     Dates: start: 20130205, end: 20130211
  6. SAROTEN [Concomitant]
     Active Substance: AMITRIPTYLINE
     Dosage: 75 MG, QD
     Route: 065
     Dates: start: 20130212
  7. SAROTEN [Concomitant]
     Active Substance: AMITRIPTYLINE
     Dosage: 50 MG, QD
     Route: 065
     Dates: start: 20130213, end: 20130225
  8. CITALOPRAM [Concomitant]
     Active Substance: CITALOPRAM HYDROBROMIDE
     Indication: PRODUCT USED FOR UNKNOWN INDICATION
     Dosage: 20 MG, QD
     Route: 065
     Dates: start: 20130115
  9. REMERGIL [Suspect]
     Active Substance: MIRTAZAPINE
     Dosage: 15 MG, QD
     Route: 065
     Dates: start: 20130219, end: 20130226
  10. TAVOR [Suspect]
     Active Substance: LORAZEPAM
     Dosage: 0.5 MG, QD
     Route: 065
     Dates: start: 20130226, end: 20130301
  11. REMERGIL [Suspect]
     Active Substance: MIRTAZAPINE
     Indication: PRODUCT USED FOR UNKNOWN INDICATION
     Dosage: 7.5 MG, QD
     Route: 065
     Dates: start: 20130212, end: 20130218
  12. SAROTEN [Concomitant]
     Active Substance: AMITRIPTYLINE
     Dosage: 25 MG, QD
     Route: 065
     Dates: start: 20130226
  13. TAVOR [Suspect]
     Active Substance: LORAZEPAM
     Dosage: 1.5 MG, QD
     Route: 065
     Dates: start: 20130219
  14. REMERGIL [Suspect]
     Active Substance: MIRTAZAPINE
     Dosage: 22.5 MG, QD
     Route: 065
     Dates: start: 20130227, end: 20130228
  15. TAVOR [Suspect]
     Active Substance: LORAZEPAM
     Indication: PRODUCT USED FOR UNKNOWN INDICATION
     Dosage: 4 MG, QD
     Route: 065
     Dates: start: 20130129, end: 20130204
  16. TAVOR [Suspect]
     Active Substance: LORAZEPAM
     Dosage: 2 MG, QD
     Route: 065
     Dates: start: 20130212, end: 20130218
  17. TAVOR [Suspect]
     Active Substance: LORAZEPAM
     Dosage: 1 MG, QD
     Route: 065
     Dates: start: 20130220, end: 20130225

REACTIONS (2)
  - Suicide attempt [Unknown]
  - Completed suicide [Fatal]

NARRATIVE: CASE EVENT DATE: 20130128
